FAERS Safety Report 20717929 (Version 8)
Quarter: 2023Q2

REPORT INFORMATION
  Report Type: Spontaneous
  Country: US (occurrence: US)
  Receive Date: 20220418
  Receipt Date: 20230517
  Transmission Date: 20230722
  Serious: No
  Sender: FDA-Public Use
  Company Number: US-SA-SAC20220414000825

PATIENT
  Age: 63 Year
  Sex: Female

DRUGS (1)
  1. DUPIXENT [Suspect]
     Active Substance: DUPILUMAB
     Indication: Dermatitis allergic
     Dosage: 300 MG, QOW
     Route: 058
     Dates: start: 202203

REACTIONS (10)
  - Injection site pain [Unknown]
  - Injection site pruritus [Unknown]
  - Injection site erythema [Recovering/Resolving]
  - Injection site swelling [Recovered/Resolved]
  - Tenderness [Unknown]
  - Symptom recurrence [Unknown]
  - Nasal polyps [Unknown]
  - Cheilitis [Unknown]
  - Nasal ulcer [Unknown]
  - Inappropriate schedule of product administration [Unknown]

NARRATIVE: CASE EVENT DATE: 20220401
